FAERS Safety Report 7246964-2 (Version None)
Quarter: 2011Q1

REPORT INFORMATION
  Report Type: 
  Country: None (occurrence: None)
  Receive Date: 20110127
  Receipt Date: 20110119
  Transmission Date: 20110831
  Serious: Yes (Hospitalization)
  Sender: FDA-Public Use
  Company Number: BE-NOVOPROD-319108

PATIENT
  Age: 66 Year
  Sex: Female
  Weight: 106 kg

DRUGS (10)
  1. VICTOZA [Suspect]
     Dosage: 1.2 MG, QD
     Route: 065
     Dates: start: 20101013, end: 20101115
  2. HYPAN [Concomitant]
     Indication: HYPERTENSION
     Dosage: 40 MG, QD
     Route: 048
  3. NOVONORM [Concomitant]
     Indication: DIABETES MELLITUS
     Dosage: 4 MG, QID
     Route: 048
     Dates: start: 20050101
  4. NOVONORM [Concomitant]
     Dosage: 2 MG (1-1-1/DAY)
     Route: 048
  5. VICTOZA [Suspect]
     Indication: TYPE 2 DIABETES MELLITUS
     Dosage: 0.6 MG, QD
     Route: 065
     Dates: start: 20101006, end: 20101012
  6. EMCORETIC [Concomitant]
     Indication: HYPERTENSION
     Dosage: 10/25
     Route: 048
  7. GLUCOPHAGE [Concomitant]
     Indication: DIABETES MELLITUS
     Dosage: 850 UNK, TID
     Route: 048
     Dates: start: 20050101
  8. GLUCOPHAGE [Concomitant]
     Dosage: 500 MG (3X1/DAY)
  9. GALVUS [Concomitant]
     Dosage: 100 MG, QD
     Route: 048
     Dates: start: 20100101, end: 20101005
  10. ASAFLOW [Concomitant]
     Dosage: 160 MG, QD
     Route: 048

REACTIONS (11)
  - SYNCOPE [None]
  - PRURITUS GENERALISED [None]
  - DIZZINESS [None]
  - VOMITING [None]
  - ABDOMINAL PAIN [None]
  - LIVER DISORDER [None]
  - BLOOD IMMUNOGLOBULIN E INCREASED [None]
  - DECREASED APPETITE [None]
  - NAUSEA [None]
  - URINARY TRACT INFECTION [None]
  - DEHYDRATION [None]
